FAERS Safety Report 6558733-7 (Version None)
Quarter: 2010Q1

REPORT INFORMATION
  Report Type: 
  Country: None (occurrence: None)
  Receive Date: 20100129
  Receipt Date: 20100118
  Transmission Date: 20100710
  Serious: Yes (Other)
  Sender: FDA-Public Use
  Company Number: JP-PFIZER INC-2009281986

PATIENT
  Age: 59 Year
  Sex: Male
  Weight: 97 kg

DRUGS (5)
  1. SELARA [Suspect]
     Indication: CARDIAC FAILURE CHRONIC
     Dosage: 25 MG, 1X/DAY
     Route: 048
     Dates: start: 20090916, end: 20091009
  2. NU LOTAN [Concomitant]
     Indication: HYPERTENSION
     Dosage: 50 MG DAILY
     Route: 048
  3. MELBIN [Concomitant]
     Indication: DIABETES MELLITUS
     Dosage: 750 MG DAILY
     Route: 048
  4. ARTIST [Concomitant]
     Indication: HYPERTENSION
     Dosage: 5 MG DAILY
     Route: 048
  5. WARFARIN POTASSIUM [Concomitant]
     Dosage: 4 MG DAILY
     Route: 048

REACTIONS (1)
  - HEPATIC FUNCTION ABNORMAL [None]
